FAERS Safety Report 17741012 (Version 2)
Quarter: 2020Q2

REPORT INFORMATION
  Report Type: Report from Study
  Country: GB (occurrence: GB)
  Receive Date: 20200504
  Receipt Date: 20200507
  Transmission Date: 20200714
  Serious: Yes (Other)
  Sender: FDA-Public Use
  Company Number: NVSC2020GB120050

PATIENT
  Age: 81 Year
  Sex: Female

DRUGS (1)
  1. SANDOSTATIN LAR DEPOT [Suspect]
     Active Substance: OCTREOTIDE ACETATE
     Indication: PRODUCT USED FOR UNKNOWN INDICATION
     Dosage: 30 MG, EVERY 21 DAYS
     Route: 030
     Dates: start: 2018

REACTIONS (2)
  - Inappropriate schedule of product administration [Unknown]
  - Bile duct stenosis [Unknown]

NARRATIVE: CASE EVENT DATE: 2018
